FAERS Safety Report 25801831 (Version 2)
Quarter: 2025Q3

REPORT INFORMATION
  Report Type: Spontaneous
  Country: CN (occurrence: CN)
  Receive Date: 20250915
  Receipt Date: 20250925
  Transmission Date: 20251020
  Serious: Yes (Life-Threatening, Hospitalization, Other)
  Sender: ACCORD
  Company Number: CN-Accord-504371

PATIENT
  Age: 45 Year
  Sex: Male

DRUGS (3)
  1. TACROLIMUS [Suspect]
     Active Substance: TACROLIMUS
     Indication: Myasthenia gravis
     Dates: start: 202302
  2. PYRIDOSTIGMINE [Suspect]
     Active Substance: PYRIDOSTIGMINE
     Indication: Myasthenia gravis
     Dosage: TID
     Dates: start: 202302
  3. METHYLPREDNISOLONE [Suspect]
     Active Substance: METHYLPREDNISOLONE
     Indication: Myasthenia gravis
     Dates: start: 202302

REACTIONS (18)
  - Cytomegalovirus infection [Recovering/Resolving]
  - Histoplasmosis disseminated [Unknown]
  - Therapy partial responder [Unknown]
  - Aspergillus infection [Recovering/Resolving]
  - Fungal infection [Recovering/Resolving]
  - Stenotrophomonas infection [Recovering/Resolving]
  - Pneumocystis jirovecii infection [Recovering/Resolving]
  - Histoplasmosis [Recovering/Resolving]
  - H1N1 influenza [Recovering/Resolving]
  - Respiratory tract infection [Recovering/Resolving]
  - Pulmonary thrombosis [Unknown]
  - Enterococcal infection [Recovering/Resolving]
  - Colitis ulcerative [Recovering/Resolving]
  - Gastrointestinal ulcer [Recovering/Resolving]
  - Corynebacterium infection [Recovering/Resolving]
  - Staphylococcal infection [Recovering/Resolving]
  - Shock haemorrhagic [Recovering/Resolving]
  - Gastrointestinal ulcer haemorrhage [Recovering/Resolving]

NARRATIVE: CASE EVENT DATE: 20230101
